FAERS Safety Report 4790273-8 (Version None)
Quarter: 2005Q4

REPORT INFORMATION
  Report Type: 
  Country: None (occurrence: None)
  Receive Date: 20051005
  Receipt Date: 20051005
  Transmission Date: 20060501
  Serious: Yes (Life-Threatening, Hospitalization)
  Sender: FDA-Public Use
  Company Number: None

PATIENT
  Sex: Female

DRUGS (16)
  1. WARFARIN [Suspect]
     Indication: AORTIC VALVE DISEASE
     Dosage: 10MG PO EVERY OTHER DAY 7.5 MG PO EVERY OTHER DAY
     Route: 048
  2. WARFARIN [Suspect]
     Indication: MITRAL VALVE REPLACEMENT
     Dosage: 10MG PO EVERY OTHER DAY 7.5 MG PO EVERY OTHER DAY
     Route: 048
  3. WARFARIN [Suspect]
     Indication: THROMBOSIS PROPHYLAXIS
     Dosage: 10MG PO EVERY OTHER DAY 7.5 MG PO EVERY OTHER DAY
     Route: 048
  4. ACCUPRIL [Concomitant]
  5. ALLEGRA [Concomitant]
  6. AMITRIPTYLINE HCL [Concomitant]
  7. PROPENECID [Concomitant]
  8. CELEXA [Concomitant]
  9. COLCHICINE-PRN [Concomitant]
  10. COREG [Concomitant]
  11. ENALAPRIL [Concomitant]
  12. FERROUS GLUC [Concomitant]
  13. K+ [Concomitant]
  14. NIFEDIPINE [Concomitant]
  15. RANITIDINE [Concomitant]
  16. DOCUSATE [Concomitant]

REACTIONS (6)
  - ABDOMINAL PAIN UPPER [None]
  - HAEMATOCRIT DECREASED [None]
  - HAEMOGLOBIN DECREASED [None]
  - INTERNATIONAL NORMALISED RATIO INCREASED [None]
  - NAUSEA [None]
  - VOMITING [None]
